FAERS Safety Report 8781290 (Version 1)
Quarter: 2012Q4

REPORT INFORMATION
  Report Type: 
  Country: SE (occurrence: SE)
  Receive Date: 20120913
  Receipt Date: 20120913
  Transmission Date: 20130627
  Serious: Yes (Other)
  Sender: FDA-Public Use
  Company Number: SE-PFIZER INC-2012219727

PATIENT
  Age: 77 Year
  Sex: Female

DRUGS (5)
  1. ZYVOXID [Suspect]
  2. CIPROFLOXACIN [Suspect]
  3. EUSAPRIM FORTE [Suspect]
     Dosage: UNK
     Dates: start: 20120423
  4. MERONEM [Concomitant]
  5. VANCOCIN [Concomitant]

REACTIONS (3)
  - Hearing impaired [Not Recovered/Not Resolved]
  - Rash [None]
  - Pruritus [None]
